FAERS Safety Report 17334936 (Version 1)
Quarter: 2020Q1

REPORT INFORMATION
  Report Type: Report from Study
  Country: CA (occurrence: CA)
  Receive Date: 20200128
  Receipt Date: 20200128
  Transmission Date: 20200409
  Serious: Yes (Other)
  Sender: FDA-Public Use
  Company Number: CA-GLAXOSMITHKLINE-CA2020AMR000759

PATIENT
  Sex: Female

DRUGS (1)
  1. MEPOLIZUMAB [Suspect]
     Active Substance: MEPOLIZUMAB
     Indication: ASTHMA
     Dosage: 100 MG, Z (MONTHLY)
     Route: 042
     Dates: start: 20181206

REACTIONS (8)
  - Abdominal pain upper [Unknown]
  - Insomnia [Unknown]
  - Chest pain [Unknown]
  - Back pain [Unknown]
  - Cough [Unknown]
  - Pneumonia [Unknown]
  - Nasopharyngitis [Unknown]
  - Dyspnoea [Unknown]
